FAERS Safety Report 13365365 (Version 1)
Quarter: 2017Q1

REPORT INFORMATION
  Report Type: Spontaneous
  Country: US (occurrence: US)
  Receive Date: 20170323
  Receipt Date: 20170323
  Transmission Date: 20170429
  Serious: No
  Sender: FDA-Public Use
  Company Number: US-ALLERGAN-2015-002825

PATIENT
  Age: 78 Year
  Sex: Female

DRUGS (3)
  1. ESTRACE [Suspect]
     Active Substance: ESTRADIOL
     Indication: DYSPAREUNIA
     Dosage: THREE TIMES WEEKLY
     Route: 067
     Dates: start: 20151007
  2. ESTRACE [Suspect]
     Active Substance: ESTRADIOL
     Dosage: 2 DOSES
     Route: 067
     Dates: start: 201603, end: 201603
  3. VITAMINS                           /90003601/ [Concomitant]
     Active Substance: VITAMINS
     Indication: SUPPLEMENTATION THERAPY
     Dosage: UNK
     Route: 048

REACTIONS (3)
  - Vulvovaginal pruritus [Unknown]
  - Pruritus generalised [Unknown]
  - Pruritus [Recovered/Resolved]

NARRATIVE: CASE EVENT DATE: 20151007
